FAERS Safety Report 8888207 (Version 1)
Quarter: 2012Q4

REPORT INFORMATION
  Report Type: Report from Study
  Country: CA (occurrence: CA)
  Receive Date: 20121106
  Receipt Date: 20121106
  Transmission Date: 20130627
  Serious: Yes (Hospitalization)
  Sender: FDA-Public Use
  Company Number: CA-JNJFOC-20121015966

PATIENT
  Age: 42 Year
  Sex: Male
  Weight: 90.72 kg

DRUGS (2)
  1. REMICADE [Suspect]
     Indication: PSORIASIS
     Dosage: dosage and frequency was increased
     Route: 042
     Dates: start: 201202
  2. REMICADE [Suspect]
     Indication: PSORIASIS
     Route: 042
     Dates: end: 201202

REACTIONS (2)
  - Spinal operation [Unknown]
  - Pain [Recovered/Resolved]
